APPROVED DRUG PRODUCT: DICYCLOMINE HYDROCHLORIDE
Active Ingredient: DICYCLOMINE HYDROCHLORIDE
Strength: 10MG/ML
Dosage Form/Route: INJECTABLE;INJECTION
Application: A207076 | Product #001 | TE Code: AP
Applicant: SLATE RUN PHARMACEUTICALS LLC
Approved: Nov 2, 2018 | RLD: No | RS: No | Type: RX